FAERS Safety Report 17055813 (Version 20)
Quarter: 2025Q2

REPORT INFORMATION
  Report Type: Report from Study
  Country: JP (occurrence: JP)
  Receive Date: 20191120
  Receipt Date: 20250626
  Transmission Date: 20250717
  Serious: Yes (Hospitalization, Other)
  Sender: BRISTOL-MYERS SQUIBB COMPANY
  Company Number: JP-BRISTOL-MYERS SQUIBB COMPANY-BMS-2019-109716

PATIENT
  Age: 48 Year
  Sex: Male
  Weight: 67.3 kg

DRUGS (8)
  1. YERVOY [Suspect]
     Active Substance: IPILIMUMAB
     Indication: Malignant melanoma
     Route: 041
     Dates: start: 20190613, end: 20190613
  2. YERVOY [Suspect]
     Active Substance: IPILIMUMAB
     Route: 041
     Dates: start: 20190708, end: 20190708
  3. OPDIVO [Suspect]
     Active Substance: NIVOLUMAB
     Indication: Malignant melanoma
     Route: 041
     Dates: start: 20190708, end: 20190708
  4. OPDIVO [Suspect]
     Active Substance: NIVOLUMAB
     Route: 041
     Dates: start: 20190613, end: 20190613
  5. HERBALS [Concomitant]
     Active Substance: HERBALS
     Indication: Product used for unknown indication
  6. NINJINTO [ATRACTYLODES LANCEA RHIZOME;GLYCYRRHIZA SPP. ROOT;PANAX GINS [Concomitant]
     Indication: Product used for unknown indication
  7. NINJINTO [ATRACTYLODES LANCEA RHIZOME;GLYCYRRHIZA SPP. ROOT;PANAX GINS [Concomitant]
  8. NINJINTO [ATRACTYLODES LANCEA RHIZOME;GLYCYRRHIZA SPP. ROOT;PANAX GINS [Concomitant]

REACTIONS (3)
  - Tumour lysis syndrome [Recovered/Resolved]
  - Autoimmune haemolytic anaemia [Recovered/Resolved]
  - Hepatic function abnormal [Recovered/Resolved]

NARRATIVE: CASE EVENT DATE: 20190618
